FAERS Safety Report 8818466 (Version 3)
Quarter: 2013Q2

REPORT INFORMATION
  Report Type: Spontaneous
  Country: CA (occurrence: None)
  Receive Date: 20121003
  Receipt Date: 20130416
  Transmission Date: 20140414
  Serious: Yes (Other)
  Sender: FDA-Public Use
  Company Number: 2012033485

PATIENT
  Sex: 0

DRUGS (1)
  1. HIZENTRA [Suspect]

REACTIONS (1)
  - Meningitis aseptic [None]
